FAERS Safety Report 12391099 (Version 19)
Quarter: 2020Q1

REPORT INFORMATION
  Report Type: Spontaneous
  Country: US (occurrence: US)
  Receive Date: 20160520
  Receipt Date: 20200206
  Transmission Date: 20200409
  Serious: Yes (Hospitalization, Other)
  Sender: FDA-Public Use
  Company Number: US-PFIZER INC-2016268606

PATIENT
  Age: 65 Year
  Sex: Female
  Weight: 68 kg

DRUGS (28)
  1. IBRANCE [Suspect]
     Active Substance: PALBOCICLIB
     Dosage: 100 MG, DAILY
     Dates: start: 20160601, end: 2016
  2. IBRANCE [Suspect]
     Active Substance: PALBOCICLIB
     Dosage: 100 MG, CYCLIC(DAILY FOR 3 WEEKS ON 1 WEEK OFF FOR A 28 DAY CYCLE/ DAILY X 21 DAYS FOR 28 DAY CYCLE)
     Route: 048
  3. FASLODEX [Concomitant]
     Active Substance: FULVESTRANT
     Dosage: UNK
     Dates: start: 20160915, end: 2016
  4. VITAMIN D [Concomitant]
     Active Substance: VITAMIN D NOS
     Dosage: UNK
  5. IBRANCE [Suspect]
     Active Substance: PALBOCICLIB
     Dosage: 125 MG, CYCLIC (DAILY, EVERY NIGHT FOR 21 DAYS)
     Route: 048
     Dates: start: 20160425, end: 2016
  6. XGEVA [Concomitant]
     Active Substance: DENOSUMAB
     Indication: PATHOLOGICAL FRACTURE
     Dosage: UNK UNK, MONTHLY (EVERY 30 DAYS)
     Dates: start: 20160212, end: 2016
  7. XGEVA [Concomitant]
     Active Substance: DENOSUMAB
     Dosage: UNK
     Dates: start: 20160915, end: 2016
  8. XGEVA [Concomitant]
     Active Substance: DENOSUMAB
     Dosage: UNK, MONTHLY
     Dates: start: 20161109
  9. CALCIUM [Concomitant]
     Active Substance: CALCIUM
     Dosage: UNK
  10. SELENIUM [Concomitant]
     Active Substance: SELENIUM
     Dosage: UNK
  11. IODINE. [Concomitant]
     Active Substance: IODINE
     Dosage: UNK
  12. TOCOPHERYL ACID SUCCINATE [Concomitant]
     Dosage: UNK
  13. ZINC. [Concomitant]
     Active Substance: ZINC
     Dosage: UNK
  14. IBRANCE [Suspect]
     Active Substance: PALBOCICLIB
     Dosage: 100 MG, DAILY
     Dates: start: 20161025, end: 20161115
  15. IBRANCE [Suspect]
     Active Substance: PALBOCICLIB
     Dosage: 100 MG, CYCLIC (DAILY FOR 3 WEEKS ON 1 WEEK OFF FOR A 28 DAY CYCLE)
     Route: 048
     Dates: start: 20170316, end: 2017
  16. GELATIN [Concomitant]
     Active Substance: GELATIN
     Dosage: UNK
  17. MAGNESIUM [Concomitant]
     Active Substance: MAGNESIUM
     Dosage: UNK
  18. VITAMIN B COMPLEX [Concomitant]
     Active Substance: CYANOCOBALAMIN\DEXPANTHENOL\NIACINAMIDE\PYRIDOXINE HYDROCHLORIDE\RIBOFLAVIN 5^-PHOSPHATE SODIUM\THIAMINE HYDROCHLORIDE\VITAMIN B COMPLEX
     Dosage: UNK
  19. IBRANCE [Suspect]
     Active Substance: PALBOCICLIB
     Dosage: UNK
     Dates: start: 20161129
  20. IBRANCE [Suspect]
     Active Substance: PALBOCICLIB
     Dosage: 75 MG, DAILY
     Route: 048
     Dates: start: 20170419
  21. FASLODEX [Concomitant]
     Active Substance: FULVESTRANT
     Dosage: UNK, MONTHLY  (EVERY 30 DAYS)
     Dates: start: 20160212, end: 2016
  22. BORON [Concomitant]
     Active Substance: BORON
     Dosage: UNK
  23. IBRANCE [Suspect]
     Active Substance: PALBOCICLIB
     Indication: BREAST CANCER METASTATIC
     Dosage: 100 MG, DAILY
     Dates: start: 201509, end: 2016
  24. GRAPE SEED EXTRACT [Concomitant]
     Active Substance: DIETARY SUPPLEMENT\GRAPE SEED EXTRACT
     Dosage: UNK
  25. VITAMIN A [Concomitant]
     Active Substance: VITAMIN A
     Dosage: UNK
  26. VITAMIN C [Concomitant]
     Active Substance: ASCORBIC ACID
     Dosage: UNK
  27. FASLODEX [Concomitant]
     Active Substance: FULVESTRANT
     Dosage: UNK, MONTHLY
     Dates: start: 20161109
  28. AMINO ACID COMPLEX [Concomitant]
     Active Substance: AMINO ACIDS, SOURCE UNSPECIFIED
     Dosage: UNK

REACTIONS (30)
  - Fatigue [Recovered/Resolved]
  - Cough [Recovered/Resolved]
  - Stress [Recovered/Resolved]
  - Fall [Unknown]
  - Upper respiratory tract infection [Unknown]
  - Ear discomfort [Unknown]
  - Alopecia [Unknown]
  - Back pain [Unknown]
  - Immune system disorder [Unknown]
  - Stomatitis [Recovered/Resolved]
  - Nasopharyngitis [Unknown]
  - Palpitations [Not Recovered/Not Resolved]
  - Heart rate increased [Not Recovered/Not Resolved]
  - Nausea [Unknown]
  - Diarrhoea [Recovered/Resolved]
  - Joint injury [Not Recovered/Not Resolved]
  - Intentional dose omission [Unknown]
  - Lymphadenopathy [Recovered/Resolved]
  - Chills [Unknown]
  - Malaise [Recovered/Resolved]
  - Weight increased [Not Recovered/Not Resolved]
  - Oropharyngeal pain [Recovered/Resolved]
  - Pyrexia [Recovered/Resolved]
  - Hot flush [Unknown]
  - Pain [Unknown]
  - Asthenia [Unknown]
  - Neuropathy peripheral [Unknown]
  - White blood cell count decreased [Recovered/Resolved]
  - Vomiting [Recovered/Resolved]
  - Body height decreased [Unknown]

NARRATIVE: CASE EVENT DATE: 20160511
